FAERS Safety Report 8881659 (Version 2)
Quarter: 2013Q1

REPORT INFORMATION
  Report Type: Spontaneous
  Country: US (occurrence: US)
  Receive Date: 20121101
  Receipt Date: 20130325
  Transmission Date: 20140127
  Serious: No
  Sender: FDA-Public Use
  Company Number: US-ASTRAZENECA-2012SE80401

PATIENT
  Age: 51 Year
  Sex: Female

DRUGS (12)
  1. ENTOCORT EC [Suspect]
     Indication: IMPAIRED GASTRIC EMPTYING
     Route: 048
     Dates: start: 2006
  2. NEXIUM [Suspect]
     Indication: GASTROOESOPHAGEAL REFLUX DISEASE
     Route: 048
     Dates: start: 2012
  3. AMITRIPTYLINE [Suspect]
     Indication: MIGRAINE
  4. RANITIDINE [Suspect]
  5. NEURONTIN [Concomitant]
     Indication: FIBROMYALGIA
  6. VICODIN [Concomitant]
     Indication: FIBROMYALGIA
  7. VICODIN [Concomitant]
     Indication: INTERVERTEBRAL DISC DISORDER
  8. BACLOFEN [Concomitant]
     Indication: FIBROMYALGIA
  9. TOPAMAX [Concomitant]
     Indication: FIBROMYALGIA
  10. PROZAC [Concomitant]
     Indication: DEPRESSION
  11. OXYCODONE [Concomitant]
     Indication: PAIN
  12. PROHIBINOL [Concomitant]
     Indication: MIGRAINE

REACTIONS (10)
  - Gastrooesophageal reflux disease [Unknown]
  - Malaise [Unknown]
  - Weight decreased [Unknown]
  - Pain [Unknown]
  - Dysphagia [Unknown]
  - Abdominal pain upper [Unknown]
  - Abdominal pain [Unknown]
  - Oropharyngeal pain [Unknown]
  - Drug dose omission [Unknown]
  - Intentional drug misuse [Unknown]
